FAERS Safety Report 9770953 (Version 1)
Quarter: 2013Q4

REPORT INFORMATION
  Report Type: Spontaneous
  Country: US (occurrence: US)
  Receive Date: 20131218
  Receipt Date: 20131218
  Transmission Date: 20140711
  Serious: No
  Sender: FDA-Public Use
  Company Number: US-PFIZER INC-2013359372

PATIENT
  Age: 38 Year
  Sex: Female
  Weight: 61.22 kg

DRUGS (2)
  1. GABAPENTIN [Suspect]
     Indication: NERVE INJURY
     Dosage: 150 MG (75MG X 2), 1X/DAY
     Dates: start: 2009, end: 201312
  2. LYRICA [Suspect]
     Indication: NERVE INJURY
     Dosage: 150 MG (75MG X 2), 1X/DAY
     Dates: start: 201312

REACTIONS (2)
  - Off label use [Unknown]
  - Somnolence [Unknown]
